FAERS Safety Report 5572942-5 (Version None)
Quarter: 2007Q4

REPORT INFORMATION
  Report Type: 
  Country: None (occurrence: None)
  Receive Date: 20071219
  Receipt Date: 20071219
  Transmission Date: 20080405
  Serious: No
  Sender: FDA-Public Use
  Company Number: None

PATIENT
  Age: 23 Year
  Sex: Male
  Weight: 95.2554 kg

DRUGS (1)
  1. ZIPRASIDONE HCL [Suspect]
     Dosage: 120MG  PO
     Route: 048

REACTIONS (2)
  - EUPHORIC MOOD [None]
  - MANIA [None]
